FAERS Safety Report 24306491 (Version 1)
Quarter: 2024Q3

REPORT INFORMATION
  Report Type: Spontaneous
  Country: US (occurrence: None)
  Receive Date: 20240910
  Receipt Date: 20240910
  Transmission Date: 20241016
  Serious: Yes (Death)
  Sender: Public
  Company Number: None

PATIENT
  Age: 75 Year
  Sex: Male

DRUGS (1)
  1. CABENUVA [Suspect]
     Active Substance: CABOTEGRAVIR\RILPIVIRINE
     Indication: HIV infection
     Dosage: 600-900 MG/MG EVERY 2 MONTHS INTRAMUSCULAR? ?
     Route: 030
     Dates: start: 20230607, end: 20240718

REACTIONS (1)
  - Death [None]

NARRATIVE: CASE EVENT DATE: 20240819
